FAERS Safety Report 4465041-7 (Version None)
Quarter: 2004Q3

REPORT INFORMATION
  Report Type: 
  Country: None (occurrence: None)
  Receive Date: 20040928
  Receipt Date: 20040928
  Transmission Date: 20050211
  Serious: Yes (Hospitalization)
  Sender: FDA-Public Use
  Company Number: None

PATIENT
  Age: 39 Year
  Sex: Female
  Weight: 61.2356 kg

DRUGS (1)
  1. BOTOX  ALLERGAN [Suspect]
     Indication: SKIN COSMETIC PROCEDURE
     Dosage: FOREHEAD  INTRAMUSCULAR
     Route: 030
     Dates: start: 20040616, end: 20040616

REACTIONS (9)
  - ANOREXIA [None]
  - ANXIETY [None]
  - HEART RATE INCREASED [None]
  - HYPOAESTHESIA [None]
  - INSOMNIA [None]
  - PUPILS UNEQUAL [None]
  - TREMOR [None]
  - VOMITING [None]
  - WEIGHT DECREASED [None]
